FAERS Safety Report 6058082-X (Version None)
Quarter: 2009Q1

REPORT INFORMATION
  Report Type: 
  Country: None (occurrence: None)
  Receive Date: 20090128
  Receipt Date: 20090114
  Transmission Date: 20090719
  Serious: Yes (Hospitalization)
  Sender: FDA-Public Use
  Company Number: 220009K08USA

PATIENT
  Age: 9 Year
  Sex: Male
  Weight: 54 kg

DRUGS (1)
  1. SAIZEN [Suspect]
     Indication: GROWTH HORMONE DEFICIENCY
     Dosage: 3 MG, 1 IN 1 DAYS, SUBCUTANEOUS
     Route: 058
     Dates: start: 20080901, end: 20081113

REACTIONS (3)
  - BLOOD GLUCOSE FLUCTUATION [None]
  - OPTIC DISC DRUSEN [None]
  - PAPILLOEDEMA [None]
